FAERS Safety Report 11118992 (Version 1)
Quarter: 2015Q2

REPORT INFORMATION
  Report Type: Spontaneous
  Country: US (occurrence: None)
  Receive Date: 20150515
  Receipt Date: 20150515
  Transmission Date: 20150821
  Serious: No
  Sender: FDA-Public Use
  Company Number: None

PATIENT
  Age: 52 Year
  Sex: Female
  Weight: 54.43 kg

DRUGS (1)
  1. LASTACAFT [Suspect]
     Active Substance: ALCAFTADINE
     Indication: ANTIALLERGIC THERAPY
     Route: 047

REACTIONS (2)
  - Instillation site erythema [None]
  - Headache [None]

NARRATIVE: CASE EVENT DATE: 20150514
